FAERS Safety Report 10071131 (Version 2)
Quarter: 2014Q2

REPORT INFORMATION
  Report Type: Spontaneous
  Country: US (occurrence: US)
  Receive Date: 20140410
  Receipt Date: 20140515
  Transmission Date: 20141212
  Serious: Yes (Other)
  Sender: FDA-Public Use
  Company Number: US-TEVA-473652USA

PATIENT
  Sex: Female

DRUGS (1)
  1. ESTRADIOL [Suspect]

REACTIONS (4)
  - Coeliac disease [Unknown]
  - Gastrointestinal disorder [Unknown]
  - Nausea [Unknown]
  - Diarrhoea [Unknown]
